FAERS Safety Report 9931098 (Version 2)
Quarter: 2014Q1

REPORT INFORMATION
  Report Type: Spontaneous
  Country: US (occurrence: US)
  Receive Date: 20140227
  Receipt Date: 20140227
  Transmission Date: 20141002
  Serious: Yes (Disabling)
  Sender: FDA-Public Use
  Company Number: US-GE HEALTHCARE MEDICAL DIAGNOSTICS-OSCN-PR-0810S-0571

PATIENT
  Age: 50 Year
  Sex: Male

DRUGS (10)
  1. OMNISCAN [Suspect]
     Indication: RENAL CYST
     Route: 042
     Dates: start: 20011109, end: 20011109
  2. OMNISCAN [Suspect]
     Indication: MASS
     Route: 042
     Dates: start: 20011112, end: 20011112
  3. OMNISCAN [Suspect]
     Indication: BACK PAIN
     Route: 042
     Dates: start: 20020816, end: 20020816
  4. OMNISCAN [Suspect]
     Indication: INFECTION
     Route: 042
     Dates: start: 20021114, end: 20021114
  5. OMNISCAN [Suspect]
     Indication: INTERVERTEBRAL DISCITIS
     Route: 042
     Dates: start: 20030313, end: 20030313
  6. OMNISCAN [Suspect]
     Indication: PSOAS ABSCESS
     Route: 042
     Dates: start: 20060829, end: 20060829
  7. OMNISCAN [Suspect]
     Indication: OSTEOMYELITIS
  8. OMNISCAN [Suspect]
     Indication: CARDIOMYOPATHY
  9. OMNISCAN [Suspect]
     Indication: TRANSPLANT EVALUATION
  10. OMNISCAN [Suspect]
     Indication: ECHOCARDIOGRAM ABNORMAL

REACTIONS (1)
  - Nephrogenic systemic fibrosis [Not Recovered/Not Resolved]
